FAERS Safety Report 6060077-7 (Version None)
Quarter: 2009Q1

REPORT INFORMATION
  Report Type: 
  Country: None (occurrence: None)
  Receive Date: 20090130
  Receipt Date: 20090121
  Transmission Date: 20090719
  Serious: Yes (Congenital Anomaly, Other)
  Sender: FDA-Public Use
  Company Number: FR-ELI_LILLY_AND_COMPANY-FR200901003433

PATIENT
  Sex: Female
  Weight: 3.3 kg

DRUGS (3)
  1. ZYPREXA [Suspect]
     Dosage: UNK, UNK
     Route: 064
     Dates: start: 20070827, end: 20080506
  2. LEXOMIL [Concomitant]
     Route: 064
     Dates: start: 20070827, end: 20080506
  3. LAROXYL [Concomitant]
     Route: 064
     Dates: start: 20070827, end: 20080506

REACTIONS (2)
  - DRUG EXPOSURE DURING PREGNANCY [None]
  - RENAL APLASIA [None]
